FAERS Safety Report 22374816 (Version 2)
Quarter: 2023Q2

REPORT INFORMATION
  Report Type: Spontaneous
  Country: DE (occurrence: DE)
  Receive Date: 20230527
  Receipt Date: 20230607
  Transmission Date: 20230722
  Serious: Yes (Death, Hospitalization, Other)
  Sender: FDA-Public Use
  Company Number: DE-MSNLABS-2023MSNLIT00841

PATIENT

DRUGS (11)
  1. THIOTEPA [Suspect]
     Active Substance: THIOTEPA
     Indication: Product used for unknown indication
     Dosage: HE RECEIVED CONDITIONING REGIMEN WITH FLUDARABINE [FLUDARABIN], THIOTEPA
     Route: 065
  2. THYMOCYTE IMMUNE GLOBULIN NOS [Suspect]
     Active Substance: THYMOCYTE IMMUNE GLOBULIN NOS
     Indication: Product used for unknown indication
     Dosage: HE RECEIVED CONDITIONING REGIMEN WITH FLUDARABINE [FLUDARABIN], THIOTEPA
     Route: 065
  3. CYCLOSPORINE [Suspect]
     Active Substance: CYCLOSPORINE
     Indication: Graft versus host disease
     Dosage: PROPHYLAXIS WITH CICLOSPORIN [CYCLOSPORIN A], METHOTREXATE FOR PREVENTION OF GVHD
     Route: 065
  4. CYCLOSPORINE [Suspect]
     Active Substance: CYCLOSPORINE
     Indication: Prophylaxis
  5. FLUDARABINE [Suspect]
     Active Substance: FLUDARABINE PHOSPHATE
     Indication: Product used for unknown indication
     Dosage: HE RECEIVED CONDITIONING REGIMEN WITH FLUDARABINE [FLUDARABIN], THIOTEPA
     Route: 065
  6. INFLIXIMAB [Suspect]
     Active Substance: INFLIXIMAB
     Indication: Graft versus host disease
     Dosage: HE RECEIVED GVHD TREATMENT WITH CICLOSPORIN, PREDNISOLONE, METHYLPREDNISOLONE
     Route: 065
  7. METHOTREXATE [Suspect]
     Active Substance: METHOTREXATE
     Indication: Prophylaxis against graft versus host disease
     Dosage: PROPHYLAXIS WITH CICLOSPORIN [CYCLOSPORIN A], METHOTREXATE FOR PREVENTION OF GVHD.
     Route: 065
  8. METHYLPREDNISOLONE [Suspect]
     Active Substance: METHYLPREDNISOLONE
     Indication: Graft versus host disease
     Dosage: HE RECEIVED GVHD TREATMENT WITH CICLOSPORIN, PREDNISOLONE, METHYLPREDNISOLONE
     Route: 065
  9. PREDNISOLONE [Suspect]
     Active Substance: PREDNISOLONE
     Indication: Graft versus host disease
     Dosage: HE RECEIVED GVHD TREATMENT WITH CICLOSPORIN, PREDNISOLONE, METHYLPREDNISOLONE
     Route: 065
  10. RUXOLITINIB [Suspect]
     Active Substance: RUXOLITINIB
     Indication: Graft versus host disease
     Dosage: HE RECEIVED GVHD TREATMENT WITH CICLOSPORIN, PREDNISOLONE, METHYLPREDNISOLONE
     Route: 065
  11. TACROLIMUS [Suspect]
     Active Substance: TACROLIMUS
     Indication: Graft versus host disease
     Dosage: HE RECEIVED GVHD TREATMENT WITH CICLOSPORIN, PREDNISOLONE, METHYLPREDNISOLONE
     Route: 065

REACTIONS (7)
  - Oesophagitis [Fatal]
  - Osteonecrosis [Fatal]
  - Respiratory failure [Fatal]
  - Haemoptysis [Fatal]
  - Urethral polyp [Fatal]
  - Drug ineffective [Fatal]
  - Intentional product use issue [Unknown]
